FAERS Safety Report 13322427 (Version 2)
Quarter: 2017Q2

REPORT INFORMATION
  Report Type: Spontaneous
  Country: US (occurrence: US)
  Receive Date: 20170309
  Receipt Date: 20170424
  Transmission Date: 20170830
  Serious: No
  Sender: FDA-Public Use
  Company Number: US-PFIZER INC-2017101337

PATIENT
  Sex: Male
  Weight: 84 kg

DRUGS (1)
  1. ADVIL [Suspect]
     Active Substance: IBUPROFEN
     Indication: SPINAL OPERATION
     Dosage: 400 MG, 2X/DAY (TWO 200 MG TABLETS, COUPLE TIMES A DAY)
     Dates: end: 20170306

REACTIONS (4)
  - Product physical issue [Unknown]
  - Poor quality drug administered [Unknown]
  - Drug ineffective [Unknown]
  - Product coating issue [Unknown]
